FAERS Safety Report 24430734 (Version 2)
Quarter: 2024Q4

REPORT INFORMATION
  Report Type: Spontaneous
  Country: JP (occurrence: JP)
  Receive Date: 20241013
  Receipt Date: 20241103
  Transmission Date: 20250115
  Serious: Yes (Congenital Anomaly, Other)
  Sender: JOHNSON AND JOHNSON
  Company Number: JP-JNJFOC-20241034023

PATIENT
  Age: 0 Year

DRUGS (2)
  1. SIMPONI [Suspect]
     Active Substance: GOLIMUMAB
     Indication: Colitis ulcerative
     Route: 064
  2. SIMPONI [Suspect]
     Active Substance: GOLIMUMAB
     Route: 064
     Dates: start: 202307, end: 202402

REACTIONS (3)
  - Cataract congenital [Unknown]
  - Strabismus congenital [Unknown]
  - Foetal exposure during pregnancy [Recovered/Resolved]
